FAERS Safety Report 7338851-6 (Version None)
Quarter: 2011Q1

REPORT INFORMATION
  Report Type: 
  Country: None (occurrence: None)
  Receive Date: 20110303
  Receipt Date: 20110303
  Transmission Date: 20110831
  Serious: Yes (Disabling)
  Sender: FDA-Public Use
  Company Number: None

PATIENT
  Age: 77 Year
  Sex: Male
  Weight: 99.7913 kg

DRUGS (1)
  1. LEXAPRO [Suspect]
     Indication: DEPRESSION
     Dosage: 30MG 1 AT NIGHT ORAL
     Route: 048
     Dates: start: 20101129, end: 20110124

REACTIONS (3)
  - NIGHTMARE [None]
  - AMNESIA [None]
  - FALL [None]
